FAERS Safety Report 21503945 (Version 1)
Quarter: 2022Q4

REPORT INFORMATION
  Report Type: Spontaneous
  Country: US (occurrence: None)
  Receive Date: 20221025
  Receipt Date: 20221025
  Transmission Date: 20230113
  Serious: Yes (Life-Threatening)
  Sender: FDA-Public Use
  Company Number: None

PATIENT
  Age: 77 Year
  Sex: Female

DRUGS (1)
  1. ZEJULA [Suspect]
     Active Substance: NIRAPARIB
     Indication: Ovarian cancer
     Dosage: OTHER QUANTITY : 60 CAPSULE(S);?FREQUENCY : TWICE A DAY;?
     Route: 048
     Dates: start: 20211013, end: 20220201

REACTIONS (21)
  - Tumour marker increased [None]
  - Therapeutic product effect variable [None]
  - Abdominal pain upper [None]
  - Fatigue [None]
  - Decreased appetite [None]
  - Headache [None]
  - Vision blurred [None]
  - Myalgia [None]
  - Muscular weakness [None]
  - Taste disorder [None]
  - Hyperhidrosis [None]
  - Eructation [None]
  - Insomnia [None]
  - Fatigue [None]
  - Blood glucose increased [None]
  - Dizziness [None]
  - Weight decreased [None]
  - Pruritus [None]
  - Tremor [None]
  - Product formulation issue [None]
  - Product tampering [None]
